FAERS Safety Report 25754014 (Version 1)
Quarter: 2025Q3

REPORT INFORMATION
  Report Type: Spontaneous
  Country: CN (occurrence: CN)
  Receive Date: 20250903
  Receipt Date: 20250903
  Transmission Date: 20251020
  Serious: Yes (Other)
  Sender: SANOFI AVENTIS
  Company Number: CN-SA-2025SA259853

PATIENT
  Age: 65 Year
  Sex: Female
  Weight: 63 kg

DRUGS (1)
  1. INSULIN GLARGINE\LIXISENATIDE [Suspect]
     Active Substance: INSULIN GLARGINE\LIXISENATIDE
     Indication: Diabetes mellitus
     Dosage: 14 U, QD
     Route: 058
     Dates: start: 20250826, end: 20250826

REACTIONS (3)
  - Abdominal distension [Recovered/Resolved]
  - Vomiting [Recovered/Resolved]
  - Nausea [Recovered/Resolved]

NARRATIVE: CASE EVENT DATE: 20250826
